FAERS Safety Report 23336707 (Version 3)
Quarter: 2024Q1

REPORT INFORMATION
  Report Type: Other
  Country: US (occurrence: None)
  Receive Date: 20231226
  Receipt Date: 20240110
  Transmission Date: 20240409
  Serious: Yes (Other)
  Sender: FDA-Public Use
  Company Number: US-ROCHE-3478124

PATIENT
  Age: 49 Year
  Sex: Female

DRUGS (1)
  1. OCREVUS [Suspect]
     Active Substance: OCRELIZUMAB
     Indication: Relapsing multiple sclerosis
     Dosage: STRENGTH: 300MG/10 ML; INFUSE 600MG/20ML
     Route: 042

REACTIONS (6)
  - Pancreatitis [Unknown]
  - Ulcer [Unknown]
  - Pain in extremity [Unknown]
  - Depression [Not Recovered/Not Resolved]
  - Nervous system disorder [Unknown]
  - Paraesthesia [Unknown]

NARRATIVE: CASE EVENT DATE: 20221222
